FAERS Safety Report 8609010-1 (Version None)
Quarter: 2012Q3

REPORT INFORMATION
  Report Type: 
  Country: None (occurrence: None)
  Receive Date: 20120821
  Receipt Date: 20120814
  Transmission Date: 20120928
  Serious: Yes (Hospitalization, Other)
  Sender: FDA-Public Use
  Company Number: AU-GLAXOSMITHKLINE-B0766014A

PATIENT
  Sex: Female

DRUGS (3)
  1. TYKERB [Suspect]
     Indication: BREAST CANCER METASTATIC
     Dosage: 1250MG PER DAY
     Route: 048
     Dates: start: 20111014
  2. TAMOXIFEN CITRATE [Suspect]
     Indication: PRODUCT USED FOR UNKNOWN INDICATION
     Route: 065
  3. XELODA [Suspect]
     Indication: PRODUCT USED FOR UNKNOWN INDICATION
     Dosage: 500MG PER DAY
     Route: 065
     Dates: start: 20111014

REACTIONS (15)
  - DIARRHOEA [None]
  - HYPOAESTHESIA [None]
  - DYSPHONIA [None]
  - GASTROINTESTINAL SOUNDS ABNORMAL [None]
  - DEFAECATION URGENCY [None]
  - PALMAR-PLANTAR ERYTHRODYSAESTHESIA SYNDROME [None]
  - BRAIN NEOPLASM [None]
  - COAGULOPATHY [None]
  - ORAL PAIN [None]
  - EYE DISORDER [None]
  - SKIN LESION [None]
  - PRURITUS [None]
  - NAIL INFECTION [None]
  - CENTRAL NERVOUS SYSTEM LESION [None]
  - NEOPLASM [None]
